FAERS Safety Report 8596534-9 (Version None)
Quarter: 2012Q3

REPORT INFORMATION
  Report Type: 
  Country: None (occurrence: None)
  Receive Date: 20120806
  Receipt Date: 20120806
  Transmission Date: 20120928
  Serious: Yes (Life-Threatening, Hospitalization)
  Sender: FDA-Public Use
  Company Number: None

PATIENT
  Age: 49 Year
  Sex: Female
  Weight: 35.4 kg

DRUGS (5)
  1. FUROSEMIDE [Concomitant]
  2. PREDNISONE [Suspect]
     Indication: HEPATIC FAILURE
     Dosage: TAPERING DOSAGE DAILY PO
     Route: 048
     Dates: start: 20120620, end: 20120707
  3. PREDNISONE [Suspect]
     Indication: HEPATIC FAILURE
     Dosage: TAPERING DOSAGE DAILY PO
     Route: 048
     Dates: start: 20120625, end: 20120718
  4. SPIRONOLACTONE [Concomitant]
  5. LEVOTHYROXINE SODIUM [Concomitant]

REACTIONS (3)
  - HEPATIC CIRRHOSIS [None]
  - MEDICATION ERROR [None]
  - ENDOCARDITIS [None]
